FAERS Safety Report 15789956 (Version 1)
Quarter: 2018Q4

REPORT INFORMATION
  Report Type: Spontaneous
  Country: US (occurrence: US)
  Receive Date: 20181213
  Receipt Date: 20181213
  Transmission Date: 20190205
  Serious: No
  Sender: FDA-Public Use
  Company Number: None

PATIENT
  Age: 70 Year
  Sex: Female
  Weight: 70.76 kg

DRUGS (2)
  1. ENBREL [Concomitant]
     Active Substance: ETANERCEPT
  2. PREDNISONE. [Suspect]
     Active Substance: PREDNISONE
     Indication: RHEUMATOID ARTHRITIS
     Route: 058
     Dates: start: 201807

REACTIONS (1)
  - Paraesthesia [None]
